FAERS Safety Report 5394395-2 (Version None)
Quarter: 2007Q3

REPORT INFORMATION
  Report Type: 
  Country: None (occurrence: None)
  Receive Date: 20070723
  Receipt Date: 20070711
  Transmission Date: 20080115
  Serious: Yes (Hospitalization)
  Sender: FDA-Public Use
  Company Number: AU-SANOFI-SYNTHELABO-A01200707509

PATIENT
  Age: 67 Year
  Sex: Male

DRUGS (2)
  1. ZOLPIDEM TARTRATE [Suspect]
     Indication: SLEEP DISORDER
     Dosage: 10 MG
     Route: 048
     Dates: start: 20040115, end: 20040215
  2. ZOLPIDEM TARTRATE [Suspect]
     Route: 048
     Dates: start: 20040215, end: 20040215

REACTIONS (2)
  - INJURY [None]
  - SOMNAMBULISM [None]
